FAERS Safety Report 13072911 (Version 1)
Quarter: 2016Q4

REPORT INFORMATION
  Report Type: Spontaneous
  Country: US (occurrence: US)
  Receive Date: 20161229
  Receipt Date: 20161229
  Transmission Date: 20170207
  Serious: Yes (Disabling, Other)
  Sender: FDA-Public Use
  Company Number: US-SANOFI-AVENTIS-200918389US

PATIENT
  Age: 62 Year
  Sex: Female

DRUGS (1)
  1. TAXOTERE [Suspect]
     Active Substance: DOCETAXEL
     Indication: BREAST CANCER
     Dosage: DOSE AS USED: UNK
     Route: 041
     Dates: start: 20150630, end: 20151013

REACTIONS (2)
  - Alopecia [Not Recovered/Not Resolved]
  - Androgenetic alopecia [Not Recovered/Not Resolved]
